FAERS Safety Report 12780343 (Version 3)
Quarter: 2016Q4

REPORT INFORMATION
  Report Type: Spontaneous
  Country: NO (occurrence: NO)
  Receive Date: 20160926
  Receipt Date: 20161117
  Transmission Date: 20170207
  Serious: Yes (Hospitalization)
  Sender: FDA-Public Use
  Company Number: NO-SA-2016SA173101

PATIENT
  Age: 29 Year
  Sex: Female

DRUGS (9)
  1. ZOVIRAX [Concomitant]
     Active Substance: ACYCLOVIR
     Indication: PREMEDICATION
     Route: 048
     Dates: start: 20160801
  2. INTERFERON BETA NOS [Concomitant]
     Active Substance: INTERFERON BETA
     Dosage: INTERFERON-BETA FROM JUNE TO JULY 2016 (TREATMENT STOPPED IN THE END OF JULY).
     Dates: start: 20160606, end: 201607
  3. DUORESP SPIROMAX [Concomitant]
     Active Substance: BUDESONIDE\FORMOTEROL
     Indication: ASTHMA
  4. PARACET [Concomitant]
     Active Substance: ACETAMINOPHEN
     Indication: PREMEDICATION
     Route: 048
     Dates: start: 20160801
  5. CETIRIZINE [Concomitant]
     Active Substance: CETIRIZINE HYDROCHLORIDE
     Indication: PREMEDICATION
     Route: 048
     Dates: start: 20160801
  6. SOLU-MEDROL [Concomitant]
     Active Substance: METHYLPREDNISOLONE SODIUM SUCCINATE
     Indication: PREMEDICATION
     Dosage: 1 G DAILY FOR 3 DAYS, THEN 500 MG DAILY FOR 2 DAYS ADMINISTERED 30 MINUTES BEFORE LEMTRADA
     Route: 042
     Dates: start: 20160801
  7. SOMAC [Concomitant]
     Active Substance: PANTOPRAZOLE SODIUM
     Indication: PREMEDICATION
     Route: 048
     Dates: start: 20160801
  8. LEMTRADA [Suspect]
     Active Substance: ALEMTUZUMAB
     Indication: RELAPSING-REMITTING MULTIPLE SCLEROSIS
     Dosage: 24 MG DIVIDED IN TWO INFUSIONS. INFUSION RATE 12 ML/HOUR, INCREASED TO 20 ML/HOUR.
     Route: 041
     Dates: start: 20160801, end: 20160802
  9. SOLU-MEDROL [Concomitant]
     Active Substance: METHYLPREDNISOLONE SODIUM SUCCINATE
     Indication: PREMEDICATION
     Route: 042

REACTIONS (4)
  - Pulmonary alveolar haemorrhage [Recovered/Resolved]
  - Respiratory disorder [Recovered/Resolved]
  - Respiratory disorder [Not Recovered/Not Resolved]
  - Haemoptysis [Recovered/Resolved]

NARRATIVE: CASE EVENT DATE: 20160802
